FAERS Safety Report 20885396 (Version 1)
Quarter: 2022Q2

REPORT INFORMATION
  Report Type: Spontaneous
  Country: DE (occurrence: DE)
  Receive Date: 20220527
  Receipt Date: 20220527
  Transmission Date: 20220721
  Serious: Yes (Other)
  Sender: FDA-Public Use
  Company Number: DE-DCGMA-22198214

PATIENT
  Age: 70 Year
  Sex: Male

DRUGS (1)
  1. SEVELAMER [Suspect]
     Active Substance: SEVELAMER

REACTIONS (3)
  - Transitional cell carcinoma [Unknown]
  - Peritonitis [Unknown]
  - Histology abnormal [Unknown]
